FAERS Safety Report 12654878 (Version 2)
Quarter: 2016Q4

REPORT INFORMATION
  Report Type: Spontaneous
  Country: US (occurrence: US)
  Receive Date: 20160816
  Receipt Date: 20161007
  Transmission Date: 20170207
  Serious: Yes (Hospitalization, Other)
  Sender: FDA-Public Use
  Company Number: US-PFIZER INC-2016382034

PATIENT
  Age: 73 Year
  Sex: Female

DRUGS (7)
  1. ZOCOR [Concomitant]
     Active Substance: SIMVASTATIN
     Dosage: 40 MG, UNK
  2. HYZAAR [Concomitant]
     Active Substance: HYDROCHLOROTHIAZIDE\LOSARTAN POTASSIUM
     Dosage: UNK, (HYDROCHLOROTHIAZIDE 100 MG, LOSARTAN POTASSIUM 12.5 MG)
  3. ADVIL [Concomitant]
     Active Substance: IBUPROFEN
     Dosage: 200 MG, UNK
  4. TYLENOL [Concomitant]
     Active Substance: ACETAMINOPHEN
     Dosage: 500 MG, UNK
  5. MOTRIN [Concomitant]
     Active Substance: IBUPROFEN
     Dosage: 200 MG, UNK
  6. IBRANCE [Suspect]
     Active Substance: PALBOCICLIB
     Indication: BREAST CANCER METASTATIC
     Dosage: 125 MG, 1X/DAY
     Route: 048
     Dates: start: 20160718
  7. FASLODEX [Concomitant]
     Active Substance: FULVESTRANT
     Dosage: UNK, (250 MG/5 ML)

REACTIONS (14)
  - Choking [Unknown]
  - Acute kidney injury [Unknown]
  - Dysphagia [Unknown]
  - Joint swelling [Unknown]
  - Syncope [Recovered/Resolved]
  - Seizure [Unknown]
  - Feeling abnormal [Unknown]
  - Hypertension [Unknown]
  - Incontinence [Unknown]
  - Product size issue [Unknown]
  - Atrial fibrillation [Recovered/Resolved]
  - Cough [Unknown]
  - Confusional state [Unknown]
  - Dehydration [Unknown]

NARRATIVE: CASE EVENT DATE: 20160802
